FAERS Safety Report 19552472 (Version 3)
Quarter: 2021Q4

REPORT INFORMATION
  Report Type: Spontaneous
  Country: US (occurrence: US)
  Receive Date: 20210714
  Receipt Date: 20211011
  Transmission Date: 20220303
  Serious: No
  Sender: FDA-Public Use
  Company Number: US-KARYOPHARM-2021KPT000892

PATIENT

DRUGS (19)
  1. XPOVIO [Suspect]
     Active Substance: SELINEXOR
     Indication: Plasma cell myeloma
     Dosage: 60 MG, WEEKLY
     Route: 048
     Dates: start: 20210628, end: 202107
  2. XPOVIO [Suspect]
     Active Substance: SELINEXOR
     Dosage: 40 MG, WEEKLY
     Route: 048
     Dates: start: 20210922
  3. HYDROCODONE BITARTRATE AND ACETAMINOPHEN [Concomitant]
     Active Substance: ACETAMINOPHEN\HYDROCODONE BITARTRATE
  4. METOCLOPRAMIDE [Concomitant]
     Active Substance: METOCLOPRAMIDE
  5. ONDANSETRON [Concomitant]
     Active Substance: ONDANSETRON
  6. KYPROLIS [Concomitant]
     Active Substance: CARFILZOMIB
  7. FOLIC ACID [Concomitant]
     Active Substance: FOLIC ACID
  8. SIMVASTATIN [Concomitant]
     Active Substance: SIMVASTATIN
  9. CELEBREX [Concomitant]
     Active Substance: CELECOXIB
  10. VALACYCLOVIR HYDROCHLORIDE [Concomitant]
     Active Substance: VALACYCLOVIR HYDROCHLORIDE
  11. NIACIN [Concomitant]
     Active Substance: NIACIN
  12. LANSOPRAZOLE [Concomitant]
     Active Substance: LANSOPRAZOLE
  13. RAMIPRIL [Concomitant]
     Active Substance: RAMIPRIL
  14. CARVEDILOL [Concomitant]
     Active Substance: CARVEDILOL
  15. DEXAMETHASONE [Concomitant]
     Active Substance: DEXAMETHASONE
  16. CHOLESTYRAMINE [Concomitant]
     Active Substance: CHOLESTYRAMINE
  17. REVLIMID [Concomitant]
     Active Substance: LENALIDOMIDE
  18. PSEUDOEPHEDRINE. [Concomitant]
     Active Substance: PSEUDOEPHEDRINE HYDROCHLORIDE
  19. OLANZAPINE [Concomitant]
     Active Substance: OLANZAPINE

REACTIONS (5)
  - Cold sweat [Recovered/Resolved]
  - Abdominal pain upper [Unknown]
  - Nausea [Not Recovered/Not Resolved]
  - Decreased appetite [Not Recovered/Not Resolved]
  - Fatigue [Unknown]

NARRATIVE: CASE EVENT DATE: 20210101
